FAERS Safety Report 12212317 (Version 1)
Quarter: 2016Q1

REPORT INFORMATION
  Report Type: Other
  Country: US (occurrence: US)
  Receive Date: 20160325
  Receipt Date: 20160325
  Transmission Date: 20160526
  Serious: No
  Sender: FDA-Public Use
  Company Number: US-DEP_02565_2015

PATIENT
  Sex: Male

DRUGS (5)
  1. GRALISE [Suspect]
     Active Substance: GABAPENTIN
     Indication: PAIN
     Dosage: TITRATED UP TO 600 MG, ONCE DAILY
     Route: 048
     Dates: start: 201502
  2. UNSPECIFIED ANTI-ANXIETY MEDICATION [Concomitant]
     Dosage: DF
  3. ANTIHYPERTENSIVES [Concomitant]
     Active Substance: UNSPECIFIED INGREDIENT
     Dosage: DF
  4. MORPHINE [Suspect]
     Active Substance: MORPHINE
     Indication: PAIN
     Dates: end: 2015
  5. GRALISE [Suspect]
     Active Substance: GABAPENTIN
     Indication: OFF LABEL USE
     Dosage: DF
     Route: 048
     Dates: start: 20150128, end: 2015

REACTIONS (1)
  - Confusional state [Unknown]

NARRATIVE: CASE EVENT DATE: 2015
